FAERS Safety Report 26200133 (Version 1)
Quarter: 2025Q4

REPORT INFORMATION
  Report Type: Report from Study
  Country: US (occurrence: None)
  Receive Date: 20251225
  Receipt Date: 20251225
  Transmission Date: 20260118
  Serious: Yes (Other)
  Sender: UCB
  Company Number: US-UCBSA-2025081422

PATIENT
  Age: 36 Year
  Weight: 60.771 kg

DRUGS (23)
  1. CERTOLIZUMAB PEGOL [Suspect]
     Active Substance: CERTOLIZUMAB PEGOL
     Indication: Rheumatoid arthritis
     Dosage: 400 MILLIGRAM, EV 2 WEEKS(QOW)
  2. CERTOLIZUMAB PEGOL [Suspect]
     Active Substance: CERTOLIZUMAB PEGOL
     Dosage: 400 MILLIGRAM, MONTHLY (QM)
  3. ALLEGRA [Concomitant]
     Active Substance: FEXOFENADINE HYDROCHLORIDE
     Indication: Hypersensitivity
     Dosage: 180 MILLIGRAM, ONCE DAILY (QD)
     Route: 061
  4. ASPIRIN [Concomitant]
     Active Substance: ASPIRIN
     Dosage: 1 PILL, ONCE DAILY (QD)
     Route: 061
  5. BOOSTRIX [Concomitant]
     Active Substance: TETANUS TOXOID, REDUCED DIPHTHERIA TOXOID AND ACELLULAR PERTUSSIS VACCINE ADSORBED, TDAP
     Indication: Product used for unknown indication
     Dosage: 1 SHOT, ONCE DAILY (QD)
  6. CAFFEINE [Concomitant]
     Active Substance: CAFFEINE
     Indication: Product used for unknown indication
     Dosage: UNK
     Route: 061
  7. DIETARY SUPPLEMENT [Concomitant]
     Active Substance: DIETARY SUPPLEMENT
     Indication: Product used for unknown indication
     Dosage: 1 PILL, ONCE DAILY (QD)
     Route: 061
  8. FOLIC ACID [Concomitant]
     Active Substance: FOLIC ACID
     Indication: Product used for unknown indication
     Dosage: 1 MILLIGRAM, ONCE DAILY (QD)
     Route: 061
  9. MINERALS\OMEGA-3 FATTY ACIDS\VITAMINS [Concomitant]
     Active Substance: MINERALS\OMEGA-3 FATTY ACIDS\VITAMINS
     Indication: Product used for unknown indication
     Dosage: 4 PILL, ONCE DAILY (QD)
     Route: 061
  10. IRON [Concomitant]
     Active Substance: IRON
     Indication: Product used for unknown indication
     Dosage: 280 MILLIGRAM, ONCE DAILY (QD)
     Route: 061
  11. NORCO -NOS [Concomitant]
     Indication: Pain
     Dosage: 1.5 PILL EV 5 DAY
     Route: 061
  12. PANTOPRAZOLE SODIUM [Concomitant]
     Active Substance: PANTOPRAZOLE SODIUM
     Indication: Gastrooesophageal reflux disease
     Dosage: 40 MILLIGRAM, ONCE DAILY (QD)
     Route: 061
  13. PLAQUENIL [Concomitant]
     Active Substance: HYDROXYCHLOROQUINE SULFATE
     Indication: Rheumatoid arthritis
     Dosage: 200 MILLIGRAM, ONCE DAILY (QD)
     Route: 061
  14. PROGESTERONE [Concomitant]
     Active Substance: PROGESTERONE
     Indication: Fertility preservation
     Dosage: 2 MILLILITER, ONCE DAILY (QD)
  15. RESTASIS [Concomitant]
     Active Substance: CYCLOSPORINE
     Indication: Dry eye
     Dosage: 2 DROPS, ONCE DAILY (QD)
  16. SYNTHROID [Concomitant]
     Active Substance: LEVOTHYROXINE SODIUM
     Indication: Hypothyroidism
     Dosage: 50 MICROGRAM, ONCE DAILY (QD)
     Route: 061
  17. TYLENOL [Concomitant]
     Active Substance: ACETAMINOPHEN
     Indication: Arthralgia
     Dosage: 1000 MILLIGRAM, 2X/WEEK
     Route: 061
  18. TYLENOL [Concomitant]
     Active Substance: ACETAMINOPHEN
     Dosage: 1000 MILLIGRAM, MONTHLY (QM)
     Route: 061
  19. ZITHROMAX [Concomitant]
     Active Substance: AZITHROMYCIN DIHYDRATE
     Indication: Sinusitis
     Dosage: 2 PILL, ONCE DAILY (QD)
     Route: 061
  20. ZITHROMAX [Concomitant]
     Active Substance: AZITHROMYCIN DIHYDRATE
     Dosage: 1 PILL, ONCE DAILY (QD)
     Route: 061
  21. PRENATAL VITAMIN NOS [Concomitant]
     Indication: Product used for unknown indication
     Dosage: 1 PILL, ONCE DAILY (QD)
     Route: 061
  22. VITAMIN C [Concomitant]
     Active Substance: ASCORBIC ACID
     Indication: Product used for unknown indication
     Dosage: 500 MILLIGRAM, ONCE DAILY (QD)
     Route: 061
  23. VITAMIN D [Concomitant]
     Active Substance: VITAMIN D NOS
     Indication: Product used for unknown indication
     Dosage: 2000 IU, ONCE DAILY (QD)
     Route: 061

REACTIONS (3)
  - Injection site pain [Recovering/Resolving]
  - Caesarean section [Unknown]
  - Maternal exposure during pregnancy [Unknown]
